FAERS Safety Report 4743462-2 (Version None)
Quarter: 2005Q3

REPORT INFORMATION
  Report Type: 
  Country: None (occurrence: None)
  Receive Date: 20050810
  Receipt Date: 20050810
  Transmission Date: 20060218
  Serious: Yes (Life-Threatening, Hospitalization)
  Sender: FDA-Public Use
  Company Number: None

PATIENT
  Age: 79 Year
  Sex: Male
  Weight: 65.6 kg

DRUGS (8)
  1. THALIDOMIDE [Suspect]
     Indication: MYELODYSPLASTIC SYNDROME
     Dosage: 350 MG QHS ORAL
     Route: 048
     Dates: start: 20050331, end: 20050528
  2. DOXAZOSIN [Concomitant]
  3. FOLATE [Concomitant]
  4. WARFARIN [Concomitant]
  5. EPOGEN [Concomitant]
  6. MULTI-VITAMIN [Concomitant]
  7. CALCIUM GLUCONATE [Concomitant]
  8. PYRIDOXINE HCL [Concomitant]

REACTIONS (5)
  - ATRIAL SEPTAL DEFECT [None]
  - CEREBROVASCULAR ACCIDENT [None]
  - EMBOLISM [None]
  - EPISTAXIS [None]
  - HAEMATOCRIT DECREASED [None]
